FAERS Safety Report 9114147 (Version 2)
Quarter: 2013Q3

REPORT INFORMATION
  Report Type: Spontaneous
  Country: US (occurrence: US)
  Receive Date: 20130208
  Receipt Date: 20130708
  Transmission Date: 20140515
  Serious: Yes (Other)
  Sender: FDA-Public Use
  Company Number: US-PFIZER INC-2013052632

PATIENT
  Age: 43 Year
  Sex: Female

DRUGS (1)
  1. ARTHOTEC [Suspect]
     Indication: INFLAMMATION
     Dosage: UNK

REACTIONS (2)
  - Haemorrhage [Unknown]
  - Drug hypersensitivity [Unknown]
